FAERS Safety Report 13795989 (Version 1)
Quarter: 2017Q3

REPORT INFORMATION
  Report Type: Spontaneous
  Country: US (occurrence: US)
  Receive Date: 20170726
  Receipt Date: 20170726
  Transmission Date: 20171127
  Serious: No
  Sender: FDA-Public Use
  Company Number: US-MYLANLABS-2016M1042351

PATIENT
  Sex: Female

DRUGS (1)
  1. ARMODAFINIL. [Suspect]
     Active Substance: ARMODAFINIL
     Indication: NARCOLEPSY
     Dosage: 150 MG, QD
     Route: 048
     Dates: start: 201606, end: 201608

REACTIONS (1)
  - Drug effect decreased [Recovered/Resolved]

NARRATIVE: CASE EVENT DATE: 201606
